FAERS Safety Report 5812960-2 (Version None)
Quarter: 2008Q3

REPORT INFORMATION
  Report Type: 
  Country: None (occurrence: None)
  Receive Date: 20080717
  Receipt Date: 20070827
  Transmission Date: 20090109
  Serious: No
  Sender: FDA-Public Use
  Company Number: A0676318A

PATIENT
  Age: 25 Year

DRUGS (1)
  1. NICORETTE [Suspect]
     Dates: start: 20070823, end: 20070823

REACTIONS (3)
  - ABDOMINAL PAIN UPPER [None]
  - DIZZINESS [None]
  - MALAISE [None]
